FAERS Safety Report 8489291-8 (Version None)
Quarter: 2012Q3

REPORT INFORMATION
  Report Type: 
  Country: None (occurrence: None)
  Receive Date: 20120705
  Receipt Date: 20120626
  Transmission Date: 20120928
  Serious: Yes (Hospitalization)
  Sender: FDA-Public Use
  Company Number: JP-VERTEX PHARMACEUTICALS INC.-AE-2012-008502

PATIENT
  Age: 48 Year
  Sex: Male

DRUGS (9)
  1. TELAVIC (TELAPREVIR) [Suspect]
     Indication: HEPATITIS C
     Route: 048
     Dates: start: 20120509
  2. AMOBAN [Concomitant]
     Route: 048
     Dates: start: 20120613
  3. PEG-INTRON [Concomitant]
     Indication: HEPATITIS C
     Route: 058
     Dates: start: 20120509
  4. REBETOL [Concomitant]
     Indication: HEPATITIS C
     Route: 048
     Dates: start: 20120509
  5. XYZAL [Concomitant]
     Route: 048
     Dates: start: 20120510
  6. PREDNISOLONE SODIUM SUCCINATE INJ [Concomitant]
     Route: 048
     Dates: start: 20120512
  7. NOVORAPID [Concomitant]
     Dates: start: 20120530
  8. LOXONIN [Concomitant]
     Route: 048
     Dates: start: 20120509, end: 20120512
  9. PRIMEPRAN [Concomitant]
     Route: 048
     Dates: start: 20120511

REACTIONS (1)
  - DIABETES MELLITUS [None]
